FAERS Safety Report 14267702 (Version 1)
Quarter: 2017Q4

REPORT INFORMATION
  Report Type: Spontaneous
  Country: US (occurrence: None)
  Receive Date: 20171211
  Receipt Date: 20171211
  Transmission Date: 20180321
  Serious: Yes (Other)
  Sender: FDA-Public Use
  Company Number: None

PATIENT
  Age: 70 Year
  Sex: Male
  Weight: 96.62 kg

DRUGS (1)
  1. ALBUTEROL. [Suspect]
     Active Substance: ALBUTEROL
     Dosage: 2 PUFFS, OTHER, INHALE
     Route: 055
     Dates: start: 20170904

REACTIONS (5)
  - Drug effect decreased [None]
  - Dyspnoea [None]
  - Cough [None]
  - Product quality issue [None]
  - Condition aggravated [None]

NARRATIVE: CASE EVENT DATE: 20171114
